FAERS Safety Report 5248147-4 (Version None)
Quarter: 2007Q1

REPORT INFORMATION
  Report Type: 
  Country: None (occurrence: None)
  Receive Date: 20070227
  Receipt Date: 20060424
  Transmission Date: 20070707
  Serious: No
  Sender: FDA-Public Use
  Company Number: US-BRISTOL-MYERS SQUIBB COMPANY-13320601

PATIENT
  Age: 63 Year
  Sex: Female

DRUGS (4)
  1. GLUCOPHAGE [Suspect]
     Indication: DIABETES MELLITUS
     Route: 048
     Dates: start: 20060227
  2. ATENOLOL [Concomitant]
  3. SYNTHROID [Concomitant]
  4. IBUPROFEN [Concomitant]

REACTIONS (1)
  - VISUAL DISTURBANCE [None]
